FAERS Safety Report 7177747-X (Version None)
Quarter: 2010Q4

REPORT INFORMATION
  Report Type: 
  Country: None (occurrence: None)
  Receive Date: 20101220
  Receipt Date: 20101207
  Transmission Date: 20110411
  Serious: Yes (Hospitalization, Other)
  Sender: FDA-Public Use
  Company Number: JP-AMGEN-JPNCT2010009877

PATIENT

DRUGS (10)
  1. PANITUMUMAB [Suspect]
     Indication: COLORECTAL CANCER
     Dosage: 6 MG/KG, Q2WK
     Route: 041
     Dates: start: 20100723
  2. TAKEPRON [Concomitant]
     Dosage: UNK
     Route: 048
  3. DUROTEP MT [Concomitant]
     Dosage: UNK
     Route: 062
  4. OPSO [Concomitant]
     Dosage: UNK
     Route: 048
  5. MUCOSTA [Concomitant]
     Dosage: UNK
     Route: 048
  6. HYPEN [Concomitant]
     Dosage: UNK
     Route: 048
  7. MAGMITT [Concomitant]
     Dosage: UNK
     Route: 048
  8. GABAPENTIN [Concomitant]
     Dosage: UNK
     Route: 048
  9. HIRUDOID SOFT [Concomitant]
     Dosage: UNK
     Route: 062
  10. ANTIHISTAMINES [Concomitant]
     Indication: PROPHYLAXIS
     Dosage: UNK
     Route: 065

REACTIONS (2)
  - CANCER PAIN [None]
  - DERMATITIS ACNEIFORM [None]
